FAERS Safety Report 6661908-X (Version None)
Quarter: 2010Q1

REPORT INFORMATION
  Report Type: 
  Country: None (occurrence: None)
  Receive Date: 20100331
  Receipt Date: 20090930
  Transmission Date: 20100710
  Serious: No
  Sender: FDA-Public Use
  Company Number: US-BRISTOL-MYERS SQUIBB COMPANY-14803522

PATIENT
  Age: 55 Year
  Sex: Female

DRUGS (2)
  1. ERBITUX [Suspect]
     Indication: HEAD AND NECK CANCER
     Dosage: RECEIVED 3RD INF
  2. BENADRYL [Concomitant]
     Indication: PREMEDICATION

REACTIONS (3)
  - DIZZINESS [None]
  - DYSPNOEA [None]
  - PARAESTHESIA [None]
